FAERS Safety Report 9144454 (Version 1)
Quarter: 2013Q1

REPORT INFORMATION
  Report Type: Other
  Country: GB (occurrence: GB)
  Receive Date: 20130306
  Receipt Date: 20130306
  Transmission Date: 20140127
  Serious: Yes (Other)
  Sender: FDA-Public Use
  Company Number: GB-WATSON-2013-03138

PATIENT
  Age: 40 Year
  Sex: Male
  Weight: 79 kg

DRUGS (4)
  1. SERTRALINE HYDROCHLORIDE (UNKNOWN) [Suspect]
     Indication: DEPRESSION
     Dosage: 50 MG, UNKNOWN
     Route: 048
     Dates: start: 20121116, end: 20121222
  2. SERTRALINE HYDROCHLORIDE (UNKNOWN) [Suspect]
     Dosage: 100 MG, UNKNOWN
     Route: 048
     Dates: start: 20121223, end: 20130201
  3. SERTRALINE HYDROCHLORIDE (UNKNOWN) [Suspect]
     Dosage: 150 MG, UNK
     Route: 048
     Dates: start: 20130202
  4. ZOPICLONE [Concomitant]
     Indication: PRODUCT USED FOR UNKNOWN INDICATION
     Dosage: UNKNOWN
     Route: 065

REACTIONS (8)
  - Tremor [Not Recovered/Not Resolved]
  - Restless legs syndrome [Not Recovered/Not Resolved]
  - Bruxism [Not Recovered/Not Resolved]
  - Heart rate increased [Not Recovered/Not Resolved]
  - Insomnia [Not Recovered/Not Resolved]
  - Yawning [Not Recovered/Not Resolved]
  - Anxiety [Recovering/Resolving]
  - Pain in extremity [Not Recovered/Not Resolved]
